FAERS Safety Report 5836338-0 (Version None)
Quarter: 2008Q3

REPORT INFORMATION
  Report Type: 
  Country: None (occurrence: None)
  Receive Date: 20080807
  Receipt Date: 20080729
  Transmission Date: 20090109
  Serious: Yes (Hospitalization)
  Sender: FDA-Public Use
  Company Number: JP-JNJFOC-20080700336

PATIENT
  Age: 77 Year
  Sex: Male
  Weight: 53 kg

DRUGS (5)
  1. ITRIZOLE [Suspect]
     Indication: INFECTION PROPHYLAXIS
     Route: 048
  2. COTRIM [Suspect]
     Indication: INFECTION PROPHYLAXIS
     Dosage: 3 TIMES A WEEK
     Route: 048
  3. ALLOPURINOL [Concomitant]
     Indication: PROPHYLAXIS
     Route: 048
  4. STOGAR [Concomitant]
     Indication: GASTRITIS PROPHYLAXIS
     Route: 048
  5. DECADRON [Concomitant]
     Indication: MULTIPLE MYELOMA
     Route: 042

REACTIONS (3)
  - C-REACTIVE PROTEIN INCREASED [None]
  - PYREXIA [None]
  - RASH GENERALISED [None]
